FAERS Safety Report 20683946 (Version 1)
Quarter: 2022Q2

REPORT INFORMATION
  Report Type: Spontaneous
  Country: US (occurrence: None)
  Receive Date: 20220405
  Receipt Date: 20220405
  Transmission Date: 20220721
  Serious: Yes (Hospitalization)
  Sender: FDA-Public Use
  Company Number: None

PATIENT
  Sex: Female
  Weight: 47.17 kg

DRUGS (4)
  1. CAPECITABINE [Suspect]
     Active Substance: CAPECITABINE
     Indication: Colon cancer
     Dosage: OTHER FREQUENCY : DAILY FOR 2WKS;?
     Route: 048
     Dates: start: 20210101
  2. COLACE [Concomitant]
     Active Substance: DOCUSATE SODIUM
  3. KASIX 40MG [Concomitant]
  4. ONDANSETRON [Concomitant]
     Active Substance: ONDANSETRON

REACTIONS (4)
  - Diarrhoea [None]
  - Dehydration [None]
  - Electrolyte imbalance [None]
  - Gastrointestinal inflammation [None]
